FAERS Safety Report 15992373 (Version 2)
Quarter: 2019Q1

REPORT INFORMATION
  Report Type: Spontaneous
  Country: US (occurrence: US)
  Receive Date: 20190221
  Receipt Date: 20190311
  Transmission Date: 20190418
  Serious: No
  Sender: FDA-Public Use
  Company Number: US-ALLERGAN-1835588US

PATIENT
  Age: 57 Year
  Sex: Female
  Weight: 70.75 kg

DRUGS (2)
  1. ESTRADIOL. [Concomitant]
     Active Substance: ESTRADIOL
     Indication: HORMONE REPLACEMENT THERAPY
     Dosage: UNK
     Route: 065
  2. OXYTROL [Suspect]
     Active Substance: OXYBUTYNIN
     Indication: HYPERTONIC BLADDER
     Dosage: 1 DF, EVERY 4 DAYS
     Route: 062
     Dates: start: 201805

REACTIONS (3)
  - Application site erythema [Not Recovered/Not Resolved]
  - Application site pruritus [Not Recovered/Not Resolved]
  - Application site reaction [Not Recovered/Not Resolved]

NARRATIVE: CASE EVENT DATE: 2018
